FAERS Safety Report 15892421 (Version 1)
Quarter: 2019Q1

REPORT INFORMATION
  Report Type: Report from Study
  Country: US (occurrence: US)
  Receive Date: 20190130
  Receipt Date: 20190130
  Transmission Date: 20190417
  Serious: No
  Sender: FDA-Public Use
  Company Number: US-EXELIXIS-CABO-18014346

PATIENT
  Age: 58 Year
  Sex: Male

DRUGS (12)
  1. OXYCODONE [Concomitant]
     Active Substance: OXYCODONE
  2. KONSYL [Concomitant]
     Active Substance: PSYLLIUM HUSK
  3. OMEPRAZOLE. [Concomitant]
     Active Substance: OMEPRAZOLE
  4. PRINIVIL [Concomitant]
     Active Substance: LISINOPRIL
  5. CABOMETYX [Suspect]
     Active Substance: CABOZANTINIB S-MALATE
     Indication: RENAL CANCER
     Dosage: 60 MG, QD
     Dates: start: 20180206, end: 20180216
  6. SYMBICORT [Concomitant]
     Active Substance: BUDESONIDE\FORMOTEROL FUMARATE DIHYDRATE
  7. CABOMETYX [Suspect]
     Active Substance: CABOZANTINIB S-MALATE
     Dosage: 40 MG, QD
     Route: 048
     Dates: start: 20180506
  8. ALBUTEROL. [Concomitant]
     Active Substance: ALBUTEROL
  9. HYDROCODONE [Concomitant]
     Active Substance: HYDROCODONE
  10. SIMVASTATIN. [Concomitant]
     Active Substance: SIMVASTATIN
  11. TRIAMCINOLON [Concomitant]
  12. MULTIVITAMINS, COMBINATIONS [Concomitant]
     Active Substance: VITAMINS

REACTIONS (1)
  - Pain [Recovered/Resolved]

NARRATIVE: CASE EVENT DATE: 201802
